FAERS Safety Report 4388863-X (Version None)
Quarter: 2004Q3

REPORT INFORMATION
  Report Type: 
  Country: None (occurrence: None)
  Receive Date: 20040701
  Receipt Date: 20040701
  Transmission Date: 20050211
  Serious: Yes (Life-Threatening, Hospitalization)
  Sender: FDA-Public Use
  Company Number: None

PATIENT
  Age: 7 Year
  Sex: Female
  Weight: 20.5 kg

DRUGS (6)
  1. VINCRISTINE [Suspect]
     Dosage: 1.3 MG WEEKLY X FOUR DOSES
  2. CYTARABINE [Suspect]
     Dosage: 70 MG ON DAY 1
  3. PREDNISONE [Suspect]
     Dosage: 35 MG, DAILY X 29 DAYS
  4. PEG-ASPARAGINASE [Suspect]
     Dosage: 2200 U X FOUR DOSES
  5. DOXORUBICIN HCL [Suspect]
     Dosage: 53 MG ON DAY 1 OF PROTOCOL
  6. METHOTREXATE [Suspect]
     Dosage: 12 MG ON 4/12/04, DAY 38
     Dates: start: 20040412

REACTIONS (2)
  - BONE MARROW DISORDER [None]
  - PRECURSOR B-LYMPHOBLASTIC LYMPHOMA RECURRENT [None]
